FAERS Safety Report 12519163 (Version 5)
Quarter: 2016Q4

REPORT INFORMATION
  Report Type: Report from Study
  Country: US (occurrence: US)
  Receive Date: 20160630
  Receipt Date: 20161014
  Transmission Date: 20170207
  Serious: Yes (Life-Threatening, Hospitalization, Other)
  Sender: FDA-Public Use
  Company Number: US-GILEAD-2016-0221307

PATIENT
  Age: 63 Year
  Sex: Female
  Weight: 58.5 kg

DRUGS (14)
  1. AMITIZA [Concomitant]
     Active Substance: LUBIPROSTONE
  2. ESCITALOPRAM [Concomitant]
     Active Substance: ESCITALOPRAM OXALATE
  3. ALPRAZOLAM. [Concomitant]
     Active Substance: ALPRAZOLAM
  4. PROLIA [Concomitant]
     Active Substance: DENOSUMAB
  5. LEVOTHYROXINE. [Concomitant]
     Active Substance: LEVOTHYROXINE
  6. LINZESS [Concomitant]
     Active Substance: LINACLOTIDE
  7. OMEPRAZOLE. [Concomitant]
     Active Substance: OMEPRAZOLE
  8. TRIAMCINOLONE ACETONIDE. [Concomitant]
     Active Substance: TRIAMCINOLONE ACETONIDE
  9. AUGMENTIN [Concomitant]
     Active Substance: AMOXICILLIN\CLAVULANATE POTASSIUM
  10. CELLCEPT [Concomitant]
     Active Substance: MYCOPHENOLATE MOFETIL\MYCOPHENOLATE MOFETIL HYDROCHLORIDE
  11. NIFEDICAL XL [Concomitant]
     Active Substance: NIFEDIPINE
  12. PROMETHAZINE [Concomitant]
     Active Substance: PROMETHAZINE\PROMETHAZINE HYDROCHLORIDE
  13. AMBRISENTAN [Suspect]
     Active Substance: AMBRISENTAN
     Indication: PULMONARY HYPERTENSION
     Dosage: 10 MG, QD
     Route: 048
  14. AMBRISENTAN [Suspect]
     Active Substance: AMBRISENTAN
     Indication: SCLERODERMA

REACTIONS (10)
  - Dyspnoea [Unknown]
  - Chemotherapy [Not Recovered/Not Resolved]
  - Oropharyngeal pain [Unknown]
  - Blood count abnormal [Unknown]
  - Chest pain [Unknown]
  - Lung neoplasm malignant [Not Recovered/Not Resolved]
  - Cough [Unknown]
  - Musculoskeletal stiffness [Unknown]
  - Fall [Unknown]
  - Productive cough [Unknown]

NARRATIVE: CASE EVENT DATE: 201604
